FAERS Safety Report 9437657 (Version 1)
Quarter: 2013Q3

REPORT INFORMATION
  Report Type: Spontaneous
  Country: GB (occurrence: GB)
  Receive Date: 20130802
  Receipt Date: 20130802
  Transmission Date: 20140515
  Serious: Yes (Hospitalization)
  Sender: FDA-Public Use
  Company Number: PHHY2013GB080415

PATIENT
  Sex: Male

DRUGS (1)
  1. ADOPORT [Suspect]
     Indication: RENAL TRANSPLANT
     Dosage: 6.5 MG, TOTAL DAILY
     Route: 048

REACTIONS (1)
  - Drug dose omission [Unknown]
